FAERS Safety Report 7249547-3 (Version None)
Quarter: 2011Q1

REPORT INFORMATION
  Report Type: 
  Country: None (occurrence: None)
  Receive Date: 20110128
  Receipt Date: 20101224
  Transmission Date: 20110831
  Serious: Yes (Death, Other)
  Sender: FDA-Public Use
  Company Number: KR-BAYER-2010-000473

PATIENT
  Sex: Male

DRUGS (3)
  1. NEXAVAR [Suspect]
     Indication: HEPATIC NEOPLASM MALIGNANT
     Dosage: 2 DF, QD
     Route: 048
     Dates: start: 20101112, end: 20101114
  2. NEXAVAR [Suspect]
     Dosage: 2 DF, BID
     Route: 048
     Dates: start: 20101115
  3. NEXAVAR [Suspect]
     Dosage: 2 DF, BID
     Route: 048
     Dates: start: 20101115

REACTIONS (7)
  - NAUSEA [None]
  - ASTHENIA [None]
  - MUSCULOSKELETAL STIFFNESS [None]
  - DECREASED APPETITE [None]
  - HEPATIC NEOPLASM MALIGNANT [None]
  - BLOOD GLUCOSE INCREASED [None]
  - HEADACHE [None]
